FAERS Safety Report 17412268 (Version 1)
Quarter: 2020Q1

REPORT INFORMATION
  Report Type: Report from Study
  Country: FR (occurrence: FR)
  Receive Date: 20200213
  Receipt Date: 20200213
  Transmission Date: 20200409
  Serious: Yes (Congenital Anomaly, Other)
  Sender: FDA-Public Use
  Company Number: FR-TEVA-2020-FR-1185153

PATIENT
  Sex: Male
  Weight: .55 kg

DRUGS (3)
  1. EMTRICITABINE,TENOFOVIR [Suspect]
     Active Substance: EMTRICITABINE\TENOFOVIR
     Indication: HIV INFECTION
     Route: 064
     Dates: start: 20121019, end: 20130402
  2. ATAZANAVIR. [Suspect]
     Active Substance: ATAZANAVIR
     Indication: HIV INFECTION
     Route: 064
     Dates: start: 20121019, end: 20130402
  3. RITONAVIR. [Suspect]
     Active Substance: RITONAVIR
     Indication: HIV INFECTION
     Route: 064
     Dates: start: 20121019, end: 20130402

REACTIONS (3)
  - Foetal exposure during pregnancy [Recovered/Resolved]
  - Heterotaxia [Unknown]
  - Single umbilical artery [Unknown]
